FAERS Safety Report 9416360 (Version 1)
Quarter: 2013Q3

REPORT INFORMATION
  Report Type: Spontaneous
  Country: US (occurrence: None)
  Receive Date: 20130723
  Receipt Date: 20130723
  Transmission Date: 20140515
  Serious: Yes (Other)
  Sender: FDA-Public Use
  Company Number: None

PATIENT
  Age: 16 Year
  Sex: Female
  Weight: 68.04 kg

DRUGS (4)
  1. SEASONIQUE [Suspect]
     Indication: CONTRACEPTION
     Dates: start: 20071001, end: 20071204
  2. ENOXAPARIN [Concomitant]
  3. WARFARIN [Concomitant]
  4. DILAUDID [Concomitant]

REACTIONS (1)
  - Pulmonary embolism [None]
